FAERS Safety Report 13339517 (Version 19)
Quarter: 2018Q3

REPORT INFORMATION
  Report Type: Report from Study
  Country: US (occurrence: US)
  Receive Date: 20170315
  Receipt Date: 20180801
  Transmission Date: 20181010
  Serious: Yes (Hospitalization)
  Sender: FDA-Public Use
  Company Number: US-ACTELION-A-NJ2017-151172

PATIENT
  Age: 47 Year
  Sex: Female
  Weight: 55.78 kg

DRUGS (11)
  1. VELETRI [Suspect]
     Active Substance: EPOPROSTENOL
     Dosage: 52.3 NG/KG, PER MIN
     Route: 042
  2. VELETRI [Suspect]
     Active Substance: EPOPROSTENOL
     Dosage: 105 NG/KG, PER MIN
     Route: 042
  3. VELETRI [Suspect]
     Active Substance: EPOPROSTENOL
     Indication: PULMONARY ARTERIAL HYPERTENSION
     Dosage: 44 NG/KG, PER MIN
     Route: 042
  4. VELETRI [Suspect]
     Active Substance: EPOPROSTENOL
     Dosage: 52 NG/KG, PER MIN
     Route: 042
  5. VELETRI [Suspect]
     Active Substance: EPOPROSTENOL
     Dosage: 50 NG/KG, PER MIN
     Route: 042
  6. OPSUMIT [Suspect]
     Active Substance: MACITENTAN
     Dosage: 10 MG, QD
     Route: 048
  7. REVATIO [Concomitant]
     Active Substance: SILDENAFIL CITRATE
  8. COUMADIN [Concomitant]
     Active Substance: WARFARIN SODIUM
  9. LASIX [Concomitant]
     Active Substance: FUROSEMIDE
  10. OPSUMIT [Suspect]
     Active Substance: MACITENTAN
     Indication: PULMONARY ARTERIAL HYPERTENSION
     Dosage: 10 MG, QD
     Route: 048
  11. XARELTO [Concomitant]
     Active Substance: RIVAROXABAN

REACTIONS (23)
  - Malnutrition [Unknown]
  - Nausea [Unknown]
  - Fluid retention [Unknown]
  - Malaise [Unknown]
  - Vomiting [Unknown]
  - Fatigue [Unknown]
  - Pneumonitis [Unknown]
  - Chest pain [Unknown]
  - Myalgia [Unknown]
  - Lung transplant [Recovering/Resolving]
  - Syncope [Unknown]
  - Hypotension [Unknown]
  - Coagulopathy [Unknown]
  - Atrial fibrillation [Unknown]
  - Pneumonia [Unknown]
  - Dehydration [Unknown]
  - Dyspnoea [Unknown]
  - General physical health deterioration [Unknown]
  - Weight decreased [Unknown]
  - Lymphadenopathy [Unknown]
  - Headache [Unknown]
  - Sinusitis [Unknown]
  - Pain in jaw [Unknown]
